FAERS Safety Report 10792582 (Version 3)
Quarter: 2015Q1

REPORT INFORMATION
  Report Type: Report from Study
  Country: RO (occurrence: RO)
  Receive Date: 20150213
  Receipt Date: 20150305
  Transmission Date: 20150721
  Serious: Yes (Hospitalization)
  Sender: FDA-Public Use
  Company Number: RO-ABBVIE-15P-135-1344439-00

PATIENT
  Age: 64 Year
  Sex: Male

DRUGS (1)
  1. DUODOPA [Suspect]
     Active Substance: CARBIDOPA\LEVODOPA
     Indication: PARKINSON^S DISEASE
     Dosage: MD: 9 ML/H;?CR: 6.7 ML/H;?ED: 3 ML/H 24H/DAY
     Route: 050
     Dates: start: 20140919, end: 20150123

REACTIONS (9)
  - Eschar [Not Recovered/Not Resolved]
  - Staphylococcal sepsis [Not Recovered/Not Resolved]
  - Weight decreased [Unknown]
  - Device occlusion [Unknown]
  - Cachexia [Not Recovered/Not Resolved]
  - Treatment noncompliance [Unknown]
  - Bronchopneumonia [Not Recovered/Not Resolved]
  - Fatigue [Unknown]
  - Malnutrition [Unknown]

NARRATIVE: CASE EVENT DATE: 201412
